FAERS Safety Report 16923295 (Version 1)
Quarter: 2019Q4

REPORT INFORMATION
  Report Type: Spontaneous
  Country: SG (occurrence: SG)
  Receive Date: 20191016
  Receipt Date: 20191016
  Transmission Date: 20200122
  Serious: Yes (Other)
  Sender: FDA-Public Use
  Company Number: SG-SUN PHARMACEUTICAL INDUSTRIES LTD-2019R1-223734

PATIENT
  Age: 45 Year

DRUGS (1)
  1. TESTOSTERONE. [Suspect]
     Active Substance: TESTOSTERONE
     Indication: PRODUCT USED FOR UNKNOWN INDICATION
     Dosage: 250 MILLIGRAM, WEEKLY (DEPOT INJECTION) (SINCE 2011)
     Route: 065

REACTIONS (3)
  - Retinal artery occlusion [Unknown]
  - Polycythaemia [Unknown]
  - Product administration error [Unknown]
